FAERS Safety Report 5029928-9 (Version None)
Quarter: 2006Q2

REPORT INFORMATION
  Report Type: 
  Country: None (occurrence: None)
  Receive Date: 20060620
  Receipt Date: 20060522
  Transmission Date: 20061013
  Serious: Yes (Life-Threatening, Hospitalization)
  Sender: FDA-Public Use
  Company Number: JP-JPN-A200601653

PATIENT
  Age: 52 Year
  Sex: Male

DRUGS (12)
  1. PAXIL [Suspect]
     Indication: DEPRESSION
     Route: 048
     Dates: start: 20060421, end: 20060515
  2. CERCINE [Suspect]
     Indication: INSOMNIA
     Dosage: 1U PER DAY
  3. DEPAS [Suspect]
     Indication: INSOMNIA
     Dosage: .5MG PER DAY
     Route: 048
     Dates: start: 20060518
  4. URSO [Concomitant]
     Indication: HEPATIC CIRRHOSIS
     Dosage: 6U PER DAY
     Route: 048
     Dates: start: 20051129
  5. OMEPRAL [Concomitant]
     Indication: REFLUX OESOPHAGITIS
     Dosage: 1U PER DAY
     Route: 065
     Dates: start: 20051129
  6. CALORYL [Concomitant]
     Indication: HYPERAMMONAEMIA
     Route: 048
  7. LIVACT [Concomitant]
     Indication: HEPATIC FAILURE
     Dosage: 3U PER DAY
     Route: 048
     Dates: start: 20051129
  8. MYSLEE [Concomitant]
     Indication: INSOMNIA
     Dosage: .5U PER DAY
     Route: 048
     Dates: start: 20051129
  9. ALDACTONE [Concomitant]
     Indication: HEPATIC CIRRHOSIS
     Dosage: 1U PER DAY
     Route: 048
  10. LASIX [Concomitant]
     Indication: ASCITES
     Dosage: .5U PER DAY
     Route: 048
  11. ETIZOLAM [Concomitant]
  12. DIAZEPAM [Concomitant]

REACTIONS (11)
  - ALANINE AMINOTRANSFERASE INCREASED [None]
  - ASPARTATE AMINOTRANSFERASE INCREASED [None]
  - CHILLS [None]
  - GRANULOCYTE COUNT DECREASED [None]
  - HEPATIC FUNCTION ABNORMAL [None]
  - HYPERTHERMIA [None]
  - IRRITABILITY [None]
  - LIVER DISORDER [None]
  - NEUTROPENIA [None]
  - PYREXIA [None]
  - SEROTONIN SYNDROME [None]
